FAERS Safety Report 5935735-2 (Version None)
Quarter: 2008Q4

REPORT INFORMATION
  Report Type: 
  Country: None (occurrence: None)
  Receive Date: 20081029
  Receipt Date: 20081029
  Transmission Date: 20090506
  Serious: No
  Sender: FDA-Public Use
  Company Number: None

PATIENT
  Age: 53 Year
  Sex: Male
  Weight: 89.36 kg

DRUGS (1)
  1. ACETAMINOPHEN AND HYDROCODONE BITARTRATE [Suspect]
     Indication: PAIN
     Dosage: 1 TAB PER HOUR PO
     Route: 048
     Dates: start: 20080808, end: 20081027

REACTIONS (1)
  - RASH [None]
